FAERS Safety Report 5478483-8 (Version None)
Quarter: 2007Q4

REPORT INFORMATION
  Report Type: 
  Country: None (occurrence: None)
  Receive Date: 20071005
  Receipt Date: 20070927
  Transmission Date: 20080405
  Serious: Yes (Hospitalization)
  Sender: FDA-Public Use
  Company Number: GB-ROCHE-522043

PATIENT
  Age: 55 Year
  Sex: Female
  Weight: 73.1 kg

DRUGS (5)
  1. ORLISTAT [Suspect]
     Indication: OBESITY
     Route: 048
     Dates: start: 20070125
  2. 1 CONCOMITANT DRUG [Concomitant]
     Indication: MYALGIA
  3. 1 CONCOMITANT DRUG [Concomitant]
     Indication: HYPERTENSION
  4. 1 CONCOMITANT DRUG [Concomitant]
  5. 1 CONCOMITANT DRUG [Concomitant]
     Indication: ASTHMA

REACTIONS (1)
  - MYOCARDIAL INFARCTION [None]
